FAERS Safety Report 5514223-1 (Version None)
Quarter: 2007Q4

REPORT INFORMATION
  Report Type: 
  Country: None (occurrence: None)
  Receive Date: 20071113
  Receipt Date: 20071108
  Transmission Date: 20080405
  Serious: Yes (Other)
  Sender: FDA-Public Use
  Company Number: CA-ASTRAZENECA-2007UW26054

PATIENT
  Age: 77 Year
  Sex: Male

DRUGS (13)
  1. XYLOCAINE [Suspect]
     Route: 047
  2. ALPHAGAN [Suspect]
     Route: 047
  3. CYCLOPENTOLATE HYDROCHLORIDE [Suspect]
     Route: 047
  4. FLURBIPROFEN [Suspect]
     Route: 047
  5. ZYMAR [Suspect]
     Route: 047
  6. PHENYLEPHRINE HYDROCHLORIDE OPTHALMIC 2.5% [Suspect]
     Route: 047
  7. PREDNISOLONE [Suspect]
     Route: 047
  8. PROVIODINE [Suspect]
     Route: 047
  9. TETRACAINE [Suspect]
     Route: 047
  10. TROPICAMIDE [Suspect]
     Route: 047
  11. ATENOLOL [Concomitant]
  12. COUMADIN [Concomitant]
  13. WARFARIN SODIUM [Concomitant]

REACTIONS (2)
  - EYE DISORDER [None]
  - INFLAMMATION [None]
